FAERS Safety Report 9923974 (Version 3)
Quarter: 2014Q2

REPORT INFORMATION
  Report Type: Spontaneous
  Country: US (occurrence: US)
  Receive Date: 20140225
  Receipt Date: 20140606
  Transmission Date: 20141212
  Serious: Yes (Hospitalization, Other)
  Sender: FDA-Public Use
  Company Number: US-GILEAD-2014-0095015

PATIENT
  Age: 49 Year
  Sex: Male
  Weight: 65.76 kg

DRUGS (16)
  1. STRIBILD [Suspect]
     Indication: HIV INFECTION
     Dosage: 1 DF, QD
     Route: 048
     Dates: start: 20130618, end: 201401
  2. FOLIC ACID [Concomitant]
     Indication: SMEAR CERVIX ABNORMAL
     Dosage: 1 MG, QD
     Route: 048
     Dates: start: 20130820
  3. IMIQUIMOD [Concomitant]
     Indication: SMEAR CERVIX ABNORMAL
     Dosage: 5 %, TIW
     Route: 061
     Dates: start: 20130904
  4. PROAIR HFA [Concomitant]
     Indication: ASTHMA
     Dosage: 90 ?G, PRN
     Route: 055
     Dates: start: 20130508
  5. MAGNESIUM OXIDE [Concomitant]
     Indication: MUSCLE SPASMS
     Dosage: 400 MG, QD
     Route: 048
     Dates: start: 20130725
  6. MOMETASONE FUROATE [Concomitant]
     Indication: ECZEMA
     Dosage: 0.1 %, UNK
     Route: 061
     Dates: start: 20130725
  7. NEXIUM                             /01479302/ [Concomitant]
     Indication: GASTROOESOPHAGEAL REFLUX DISEASE
     Dosage: 20 MG, QD
     Route: 048
     Dates: start: 20130612
  8. IBUPROFEN [Concomitant]
     Indication: ROUTINE HEALTH MAINTENANCE
     Dosage: 600 MG, UNK
     Route: 048
     Dates: start: 20131014
  9. TAB A VITE + IRON [Concomitant]
     Indication: ROUTINE HEALTH MAINTENANCE
     Dosage: 15 MG, QD
     Route: 048
     Dates: start: 20130515
  10. VALTREX [Concomitant]
     Indication: HERPES SIMPLEX
     Dosage: 1 G, QD
     Route: 048
     Dates: start: 20130925
  11. AMLODIPINE BESYLATE [Concomitant]
     Indication: HYPERTENSION
     Dosage: 5 MG, QD
     Route: 048
     Dates: start: 20120913
  12. DIPHENHYDRAMINE HCL [Concomitant]
     Indication: INSOMNIA
     Dosage: 50 MG, PRN
     Route: 048
     Dates: start: 20130725
  13. VITAMIN D NOS [Concomitant]
     Indication: VITAMIN D DEFICIENCY
     Dosage: 50000 IU, TWICE/WEEK
     Route: 048
     Dates: start: 20130725
  14. COLACE [Concomitant]
     Indication: CONSTIPATION
     Dosage: 100 MG, PRN
     Route: 048
     Dates: start: 20131216
  15. SENNA                              /00571901/ [Concomitant]
     Indication: CONSTIPATION
     Dosage: 8.6 MG, BID
     Route: 048
     Dates: start: 20131216
  16. BOOST [Concomitant]
     Indication: ROUTINE HEALTH MAINTENANCE
     Dosage: UNK
     Route: 048
     Dates: start: 20131204

REACTIONS (4)
  - HIV associated nephropathy [Unknown]
  - Renal failure acute [Recovering/Resolving]
  - Fanconi syndrome acquired [Recovering/Resolving]
  - Dyspnoea [Unknown]
